FAERS Safety Report 6172819-0 (Version None)
Quarter: 2009Q2

REPORT INFORMATION
  Report Type: 
  Country: None (occurrence: None)
  Receive Date: 20090430
  Receipt Date: 20090422
  Transmission Date: 20091009
  Serious: Yes (Death, Other)
  Sender: FDA-Public Use
  Company Number: JP-ASTRAZENECA-2009SE01246

PATIENT
  Age: 85 Year
  Sex: Female
  Weight: 48 kg

DRUGS (11)
  1. BLOPRESS [Suspect]
     Indication: HYPERTENSION
     Route: 048
     Dates: start: 20080114, end: 20080215
  2. PRIMPERAN [Interacting]
     Indication: GASTROINTESTINAL DISORDER
     Route: 065
     Dates: start: 20080113, end: 20080114
  3. LANSOPRAZOLE [Concomitant]
     Indication: ACID BASE BALANCE
     Route: 048
     Dates: start: 20080114, end: 20080215
  4. GLYCEROL 2.6% [Concomitant]
     Indication: CEREBRAL HAEMORRHAGE
     Route: 042
     Dates: start: 20080113, end: 20080119
  5. CALCIUM CHANNEL BLOCKERS [Concomitant]
     Indication: HYPERTENSION
     Route: 042
     Dates: start: 20080113, end: 20080114
  6. CALCIUM CHANNEL BLOCKERS [Concomitant]
     Route: 042
     Dates: start: 20081108, end: 20081109
  7. ADONA [Concomitant]
     Indication: HAEMOSTASIS
     Route: 065
     Dates: start: 20080113, end: 20080114
  8. TRANSAMIN [Concomitant]
     Indication: PROCOAGULANT THERAPY
     Route: 065
     Dates: start: 20080113, end: 20080114
  9. EXCEGRAN [Concomitant]
     Indication: EPILEPSY
     Route: 048
     Dates: start: 20080114, end: 20080215
  10. MAGMITT [Concomitant]
     Indication: ACID BASE BALANCE ABNORMAL
     Route: 048
     Dates: start: 20080119, end: 20080215
  11. ALLELOCK [Concomitant]
     Indication: ANTIALLERGIC THERAPY
     Route: 048
     Dates: start: 20080128, end: 20080206

REACTIONS (4)
  - CEREBRAL HAEMORRHAGE [None]
  - HAEMOGLOBIN DECREASED [None]
  - PLATELET COUNT DECREASED [None]
  - WHITE BLOOD CELL COUNT DECREASED [None]
